FAERS Safety Report 10534689 (Version 4)
Quarter: 2016Q4

REPORT INFORMATION
  Report Type: Spontaneous
  Country: US (occurrence: US)
  Receive Date: 20141022
  Receipt Date: 20161018
  Transmission Date: 20170206
  Serious: Yes (Hospitalization, Other)
  Sender: FDA-Public Use
  Company Number: US-GLAXOSMITHKLINE-US2014GSK009425

PATIENT
  Age: 82 Year
  Sex: Female

DRUGS (15)
  1. ADVAIR DISKUS [Suspect]
     Active Substance: FLUTICASONE PROPIONATE\SALMETEROL XINAFOATE
     Indication: CHRONIC OBSTRUCTIVE PULMONARY DISEASE
     Dosage: 1 PUFF(S), ONCE OR TWICE DAILY
     Route: 055
     Dates: start: 2000
  2. DIGOXIN. [Concomitant]
     Active Substance: DIGOXIN
  3. PANTOPRAZOLE [Concomitant]
     Active Substance: PANTOPRAZOLE SODIUM
  4. ADVAIR DISKUS [Suspect]
     Active Substance: FLUTICASONE PROPIONATE\SALMETEROL XINAFOATE
     Dosage: UNK
     Dates: start: 2000
  5. NASONEX [Concomitant]
     Active Substance: MOMETASONE FUROATE
  6. ADVAIR DISKUS [Suspect]
     Active Substance: FLUTICASONE PROPIONATE\SALMETEROL XINAFOATE
     Dosage: 100/50 UG
  7. ALPRAZOLAM. [Concomitant]
     Active Substance: ALPRAZOLAM
  8. METOPROLOL TARTRATE. [Concomitant]
     Active Substance: METOPROLOL TARTRATE
  9. CLOPIDOGREL SULFATE [Concomitant]
     Active Substance: CLOPIDOGREL BISULFATE
  10. OXYBUTYNIN [Concomitant]
     Active Substance: OXYBUTYNIN
  11. GABAPENTIN. [Concomitant]
     Active Substance: GABAPENTIN
  12. ADVAIR DISKUS [Suspect]
     Active Substance: FLUTICASONE PROPIONATE\SALMETEROL XINAFOATE
     Dosage: 2 PUFF(S), UNK
     Dates: start: 2000
  13. ATORVASTATIN [Concomitant]
     Active Substance: ATORVASTATIN
  14. LEVOTHYROXINE SODIUM HYDRATE [Concomitant]
     Active Substance: LEVOTHYROXINE SODIUM
  15. PREDNISONE. [Concomitant]
     Active Substance: PREDNISONE

REACTIONS (14)
  - Myocardial infarction [Recovering/Resolving]
  - Pneumonia [Unknown]
  - Speech disorder [Not Recovered/Not Resolved]
  - Cardiac pacemaker insertion [Unknown]
  - Respiratory arrest [Unknown]
  - Dyspnoea [Recovering/Resolving]
  - Deafness bilateral [Unknown]
  - Memory impairment [Unknown]
  - Cardiac failure congestive [Unknown]
  - Cystitis [Unknown]
  - Dysphonia [Not Recovered/Not Resolved]
  - Fall [Not Recovered/Not Resolved]
  - Rehabilitation therapy [Unknown]
  - Hypertension [Unknown]

NARRATIVE: CASE EVENT DATE: 2013
